FAERS Safety Report 14713444 (Version 1)
Quarter: 2018Q2

REPORT INFORMATION
  Report Type: Report from Study
  Country: KR (occurrence: KR)
  Receive Date: 20180404
  Receipt Date: 20180404
  Transmission Date: 20180711
  Serious: Yes (Other)
  Sender: FDA-Public Use
  Company Number: KR-CONCORDIA PHARMACEUTICALS INC.-E2B_00010867

PATIENT
  Age: 70 Year
  Sex: Male

DRUGS (2)
  1. ECULIZUMAB [Concomitant]
     Active Substance: ECULIZUMAB
     Indication: PAROXYSMAL NOCTURNAL HAEMOGLOBINURIA
  2. PREDNISOLONE. [Suspect]
     Active Substance: PREDNISOLONE
     Indication: PAROXYSMAL NOCTURNAL HAEMOGLOBINURIA
     Dosage: LOW-DOSE

REACTIONS (2)
  - Upper respiratory tract infection [Recovering/Resolving]
  - Infective tenosynovitis [Recovering/Resolving]
